FAERS Safety Report 14917734 (Version 1)
Quarter: 2018Q2

REPORT INFORMATION
  Report Type: Spontaneous
  Country: CA (occurrence: CA)
  Receive Date: 20180521
  Receipt Date: 20180521
  Transmission Date: 20180711
  Serious: Yes (Other)
  Sender: FDA-Public Use
  Company Number: CA-ACCORD-067199

PATIENT
  Sex: Female

DRUGS (7)
  1. ANTITHYMOCYTE IMMUNOGLOBULIN [Concomitant]
     Active Substance: THYMOCYTE IMMUNE GLOBULIN NOS
  2. PREDNISONE. [Concomitant]
     Active Substance: PREDNISONE
     Indication: IMMUNOSUPPRESSION
  3. MYCOPHENOLATE MOFETIL/MYCOPHENOLATE SODIUM/MYCOPHENOLIC ACID [Concomitant]
     Indication: IMMUNOSUPPRESSION
  4. TACROLIMUS. [Suspect]
     Active Substance: TACROLIMUS
     Indication: IMMUNOSUPPRESSION
  5. NITROUS OXIDE. [Concomitant]
     Active Substance: NITROUS OXIDE
     Indication: RIGHT VENTRICULAR DYSFUNCTION
     Route: 055
  6. CICLOSPORIN [Concomitant]
     Active Substance: CYCLOSPORINE
     Indication: IMMUNOSUPPRESSION
  7. SILDENAFIL. [Concomitant]
     Active Substance: SILDENAFIL
     Indication: RIGHT VENTRICULAR DYSFUNCTION

REACTIONS (1)
  - Microangiopathy [Unknown]
